FAERS Safety Report 5671740-1 (Version None)
Quarter: 2008Q2

REPORT INFORMATION
  Report Type: 
  Country: None (occurrence: None)
  Receive Date: 20080228
  Receipt Date: 20080116
  Transmission Date: 20081010
  Serious: No
  Sender: FDA-Public Use
  Company Number: PHEH2008US00937

PATIENT
  Sex: Female

DRUGS (4)
  1. TASIGNA [Suspect]
     Indication: CHRONIC MYELOID LEUKAEMIA
     Dosage: 400 MG, BID, ORAL; 400 MG, QD, ORAL; NO TREATMENT; 400 MG, QD, ORAL
     Route: 048
     Dates: end: 20080112
  2. TASIGNA [Suspect]
     Indication: CHRONIC MYELOID LEUKAEMIA
     Dosage: 400 MG, BID, ORAL; 400 MG, QD, ORAL; NO TREATMENT; 400 MG, QD, ORAL
     Route: 048
     Dates: start: 20080112, end: 20080114
  3. TASIGNA [Suspect]
     Indication: CHRONIC MYELOID LEUKAEMIA
     Dosage: 400 MG, BID, ORAL; 400 MG, QD, ORAL; NO TREATMENT; 400 MG, QD, ORAL
     Route: 048
     Dates: start: 20080115, end: 20080116
  4. TASIGNA [Suspect]
     Indication: CHRONIC MYELOID LEUKAEMIA
     Dosage: 400 MG, BID, ORAL; 400 MG, QD, ORAL; NO TREATMENT; 400 MG, QD, ORAL
     Route: 048
     Dates: start: 20071227

REACTIONS (4)
  - BONE PAIN [None]
  - RASH [None]
  - URTICARIA [None]
  - VERTIGO [None]
